FAERS Safety Report 19642558 (Version 1)
Quarter: 2021Q3

REPORT INFORMATION
  Report Type: Spontaneous
  Country: CN (occurrence: CN)
  Receive Date: 20210730
  Receipt Date: 20210730
  Transmission Date: 20211014
  Serious: Yes (Hospitalization, Other)
  Sender: FDA-Public Use
  Company Number: CN-PFIZER INC-202100910252

PATIENT
  Age: 39 Year
  Sex: Male
  Weight: 66 kg

DRUGS (7)
  1. METHYLPREDNISOLONE. [Suspect]
     Active Substance: METHYLPREDNISOLONE
     Dosage: 60 MG, 1X/DAY
  2. METHYLPREDNISOLONE. [Suspect]
     Active Substance: METHYLPREDNISOLONE
     Dosage: 40 MG, 1X/DAY
     Dates: start: 20210608
  3. CITICOLINE SODIUM [Suspect]
     Active Substance: CITICOLINE SODIUM
     Indication: THERAPEUTIC PROCEDURE
     Dosage: 0.2 G, 3X/DAY
     Route: 048
     Dates: start: 20210520, end: 20210601
  4. ANISODINE HYDROBROMIDE. [Suspect]
     Active Substance: ANISODINE HYDROBROMIDE
     Indication: THERAPEUTIC PROCEDURE
     Dosage: 5 MG, 1X/DAY
     Route: 030
     Dates: start: 20210520, end: 20210601
  5. METHYLPREDNISOLONE. [Suspect]
     Active Substance: METHYLPREDNISOLONE
     Indication: OPTIC ATROPHY
     Dosage: 80 MG, 1X/DAY
     Route: 048
     Dates: start: 20210520, end: 20210601
  6. IODIZED LECITHIN [Suspect]
     Active Substance: JOLETHIN
     Indication: THERAPEUTIC PROCEDURE
     Dosage: 1.5 G, 3X/DAY
     Route: 048
     Dates: start: 20210520, end: 20210601
  7. XUE SAI TONG [Suspect]
     Active Substance: HERBALS\PANAX NOTOGINSENG ROOT EXTRACT
     Indication: THERAPEUTIC PROCEDURE
     Dosage: 0.1 G, 3X/DAY
     Route: 048
     Dates: start: 20210520, end: 20210601

REACTIONS (7)
  - Pruritus [Recovering/Resolving]
  - Body temperature increased [Unknown]
  - Drug eruption [Recovering/Resolving]
  - Hepatic function abnormal [Recovering/Resolving]
  - Dermatitis allergic [Recovering/Resolving]
  - Off label use [Unknown]
  - Drug-induced liver injury [Recovering/Resolving]

NARRATIVE: CASE EVENT DATE: 20210601
